FAERS Safety Report 8491913-2 (Version None)
Quarter: 2012Q3

REPORT INFORMATION
  Report Type: 
  Country: None (occurrence: None)
  Receive Date: 20120706
  Receipt Date: 20120117
  Transmission Date: 20120928
  Serious: No
  Sender: FDA-Public Use
  Company Number: US-GLAXOSMITHKLINE-A0961803A

PATIENT
  Age: 65 Year
  Sex: Female
  Weight: 116.4 kg

DRUGS (6)
  1. KLOR-CON [Concomitant]
  2. INDOMETHACIN [Concomitant]
  3. PANTOPRAZOLE [Concomitant]
  4. HYDROCHLOROTHIAZIDE [Concomitant]
  5. AMLODIPINE [Concomitant]
  6. FLOVENT [Suspect]
     Indication: PERICARDIAL EFFUSION
     Dosage: 1PUFF TWICE PER DAY
     Route: 055
     Dates: start: 20120105, end: 20120109

REACTIONS (4)
  - VOMITING [None]
  - HEADACHE [None]
  - MALAISE [None]
  - HYPERSENSITIVITY [None]
